FAERS Safety Report 4292589-0 (Version None)
Quarter: 2004Q1

REPORT INFORMATION
  Report Type: 
  Country: None (occurrence: None)
  Receive Date: 20040126
  Receipt Date: 20031020
  Transmission Date: 20041129
  Serious: No
  Sender: FDA-Public Use
  Company Number: USA031050390

PATIENT
  Age: 82 Year
  Sex: Female
  Weight: 60 kg

DRUGS (8)
  1. FORTEO [Suspect]
     Indication: OSTEOPOROSIS
     Dates: start: 20030307
  2. LOTREL [Concomitant]
  3. LEVOTHROID [Concomitant]
  4. NEXIUM (ESOMEPARAZOLE) [Concomitant]
  5. VITAMIN E [Concomitant]
  6. VITAMIN C [Concomitant]
  7. ASPIRIN [Concomitant]
  8. CENTRUM PERFORMANCE MULTIVITAMIN [Concomitant]

REACTIONS (1)
  - ARTHRITIS [None]
